FAERS Safety Report 21748336 (Version 1)
Quarter: 2022Q4

REPORT INFORMATION
  Report Type: Spontaneous
  Country: US (occurrence: US)
  Receive Date: 20221219
  Receipt Date: 20221219
  Transmission Date: 20230113
  Serious: Yes (Death, Hospitalization, Other)
  Sender: FDA-Public Use
  Company Number: US-BRISTOL-MYERS SQUIBB COMPANY-2022-150215

PATIENT
  Age: 87 Year
  Sex: Male
  Weight: 59.87 kg

DRUGS (6)
  1. LENALIDOMIDE [Suspect]
     Active Substance: LENALIDOMIDE
     Indication: Non-Hodgkin^s lymphoma
     Dosage: FREQUENCY: 21
     Route: 048
     Dates: start: 20220702
  2. MONJUVI [Concomitant]
     Active Substance: TAFASITAMAB-CXIX
     Indication: Product used for unknown indication
     Dates: start: 20220624, end: 20220708
  3. CLOPIDOGREL [Concomitant]
     Active Substance: CLOPIDOGREL BISULFATE
     Indication: Product used for unknown indication
  4. ATORVASTATIN [Concomitant]
     Active Substance: ATORVASTATIN
     Indication: Product used for unknown indication
  5. OMEPRAZOLE [Concomitant]
     Active Substance: OMEPRAZOLE
     Indication: Product used for unknown indication
  6. DIGOXIN [Concomitant]
     Active Substance: DIGOXIN
     Indication: Product used for unknown indication

REACTIONS (8)
  - Lung disorder [Fatal]
  - Tongue blistering [Unknown]
  - Tongue haemorrhage [Unknown]
  - Metastases to kidney [Unknown]
  - Tongue exfoliation [Unknown]
  - Non-Hodgkin^s lymphoma recurrent [Unknown]
  - Metastases to lung [Unknown]
  - Metastases to lymph nodes [Unknown]
